FAERS Safety Report 9829755 (Version 2)
Quarter: 2014Q4

REPORT INFORMATION
  Report Type: Spontaneous
  Country: PL (occurrence: PL)
  Receive Date: 20140120
  Receipt Date: 20141201
  Transmission Date: 20150529
  Serious: Yes (Hospitalization)
  Sender: FDA-Public Use
  Company Number: PL-RANBAXY-2014R1-77165

PATIENT
  Age: 85 Year
  Sex: Female

DRUGS (2)
  1. CARVEDILOL. [Suspect]
     Active Substance: CARVEDILOL
     Indication: PRODUCT USED FOR UNKNOWN INDICATION
     Dosage: 6.25 MG, DAILY
     Route: 065
  2. SOTALOL. [Suspect]
     Active Substance: SOTALOL
     Indication: PRODUCT USED FOR UNKNOWN INDICATION
     Dosage: 120 MG, DAILY
     Route: 065

REACTIONS (9)
  - Sinus bradycardia [Unknown]
  - Electrocardiogram T wave abnormal [Unknown]
  - Supraventricular extrasystoles [Unknown]
  - Medication error [Unknown]
  - Electrocardiogram T wave inversion [Unknown]
  - Electrocardiogram J wave [Unknown]
  - Torsade de pointes [Unknown]
  - Electrocardiogram QT prolonged [Unknown]
  - Electrocardiogram R on T phenomenon [Unknown]
